FAERS Safety Report 16975649 (Version 1)
Quarter: 2019Q4

REPORT INFORMATION
  Report Type: Spontaneous
  Country: None (occurrence: US)
  Receive Date: 20191030
  Receipt Date: 20191030
  Transmission Date: 20200122
  Serious: No
  Sender: FDA-Public Use
  Company Number: US-AKRON, INC.-2076222

PATIENT
  Sex: Female

DRUGS (1)
  1. KETOROLAC TROMETHAMINE SOLUTION [Suspect]
     Active Substance: KETOROLAC TROMETHAMINE

REACTIONS (3)
  - Eyelid ptosis [Recovering/Resolving]
  - Swelling of eyelid [Recovering/Resolving]
  - Eyelid pain [Recovering/Resolving]
